FAERS Safety Report 9926077 (Version 5)
Quarter: 2014Q2

REPORT INFORMATION
  Report Type: Report from Study
  Country: JP (occurrence: JP)
  Receive Date: 20140226
  Receipt Date: 20140515
  Transmission Date: 20141212
  Serious: Yes (Hospitalization)
  Sender: FDA-Public Use
  Company Number: JP-UCBSA-113332

PATIENT
  Age: 65 Year
  Sex: Female
  Weight: 41.8 kg

DRUGS (6)
  1. CIMZIA [Suspect]
     Indication: RHEUMATOID ARTHRITIS
     Dosage: 200 MG SYRINGE
     Route: 058
     Dates: start: 20131106, end: 20131224
  2. CIMZIA [Suspect]
     Indication: RHEUMATOID ARTHRITIS
     Dosage: 200 MG SYRINGE
     Route: 058
     Dates: start: 20140121, end: 20140121
  3. RHEUMATREX [Concomitant]
     Route: 048
     Dates: start: 20050316, end: 20050607
  4. RHEUMATREX [Concomitant]
     Route: 048
     Dates: start: 20050608, end: 20050830
  5. RHEUMATREX [Concomitant]
     Route: 048
     Dates: start: 20050831, end: 20131001
  6. RHEUMATREX [Concomitant]
     Route: 048
     Dates: start: 20131002

REACTIONS (4)
  - Ascites [Recovered/Resolved]
  - Amylase increased [Recovered/Resolved]
  - Pancreatitis [Recovered/Resolved]
  - Large intestine perforation [Recovered/Resolved]
